FAERS Safety Report 8515469-0 (Version None)
Quarter: 2012Q3

REPORT INFORMATION
  Report Type: 
  Country: None (occurrence: None)
  Receive Date: 20120717
  Receipt Date: 20120711
  Transmission Date: 20120928
  Serious: Yes (Other)
  Sender: FDA-Public Use
  Company Number: US-ELI_LILLY_AND_COMPANY-US201207003806

PATIENT
  Sex: Male

DRUGS (4)
  1. EFFIENT [Suspect]
     Dosage: UNK, UNKNOWN
  2. ANGIOMAX [Concomitant]
     Dosage: UNK, UNKNOWN
  3. EFFIENT [Suspect]
     Indication: ACUTE MYOCARDIAL INFARCTION
     Dosage: 60 MG, OTHER
     Dates: start: 20120710
  4. INTEGRILIN [Concomitant]
     Dosage: UNK, UNKNOWN

REACTIONS (1)
  - THROMBOSIS IN DEVICE [None]
